FAERS Safety Report 8608215 (Version 8)
Quarter: 2014Q1

REPORT INFORMATION
  Report Type: Spontaneous
  Country: US (occurrence: US)
  Receive Date: 20120611
  Receipt Date: 20140306
  Transmission Date: 20141002
  Serious: Yes (Disabling, Other)
  Sender: FDA-Public Use
  Company Number: US-ASTRAZENECA-2012SE35735

PATIENT
  Age: 62 Year
  Sex: Female
  Weight: 72.6 kg

DRUGS (41)
  1. NEXIUM [Suspect]
     Indication: GASTROOESOPHAGEAL REFLUX DISEASE
     Dosage: ONCE
     Route: 048
     Dates: start: 1995, end: 2011
  2. NEXIUM [Suspect]
     Indication: GASTROOESOPHAGEAL REFLUX DISEASE
     Dosage: ONCE
     Route: 048
     Dates: start: 1995, end: 2011
  3. NEXIUM [Suspect]
     Indication: GASTROOESOPHAGEAL REFLUX DISEASE
     Route: 048
     Dates: start: 1996, end: 2011
  4. NEXIUM [Suspect]
     Indication: GASTROOESOPHAGEAL REFLUX DISEASE
     Route: 048
     Dates: start: 1996, end: 2011
  5. NEXIUM [Suspect]
     Indication: GASTROOESOPHAGEAL REFLUX DISEASE
     Route: 048
     Dates: start: 20020921
  6. NEXIUM [Suspect]
     Indication: GASTROOESOPHAGEAL REFLUX DISEASE
     Route: 048
     Dates: start: 20020921
  7. NEXIUM [Suspect]
     Indication: GASTROOESOPHAGEAL REFLUX DISEASE
     Route: 048
     Dates: start: 20060103
  8. NEXIUM [Suspect]
     Indication: GASTROOESOPHAGEAL REFLUX DISEASE
     Route: 048
     Dates: start: 20060103
  9. OMEPRAZOLE/PRILOSEC [Suspect]
     Indication: GASTROOESOPHAGEAL REFLUX DISEASE
     Route: 048
     Dates: end: 19970820
  10. OMEPRAZOLE/PRILOSEC [Suspect]
     Indication: GASTROOESOPHAGEAL REFLUX DISEASE
     Route: 048
     Dates: end: 19970820
  11. OMEPRAZOLE/PRILOSEC [Suspect]
     Indication: GASTROOESOPHAGEAL REFLUX DISEASE
     Route: 048
     Dates: start: 1995
  12. OMEPRAZOLE/PRILOSEC [Suspect]
     Indication: GASTROOESOPHAGEAL REFLUX DISEASE
     Route: 048
     Dates: start: 1995
  13. OMEPRAZOLE/PRILOSEC [Suspect]
     Indication: GASTROOESOPHAGEAL REFLUX DISEASE
     Route: 048
     Dates: start: 19970820
  14. OMEPRAZOLE/PRILOSEC [Suspect]
     Indication: GASTROOESOPHAGEAL REFLUX DISEASE
     Route: 048
     Dates: start: 19970820
  15. OMEPRAZOLE/PRILOSEC [Suspect]
     Indication: GASTROOESOPHAGEAL REFLUX DISEASE
     Route: 048
     Dates: start: 20110630, end: 20120904
  16. OMEPRAZOLE/PRILOSEC [Suspect]
     Indication: GASTROOESOPHAGEAL REFLUX DISEASE
     Route: 048
     Dates: start: 20110630, end: 20120904
  17. PROTONIX [Suspect]
     Route: 065
     Dates: start: 1997
  18. PREVACID [Suspect]
     Indication: GASTROOESOPHAGEAL REFLUX DISEASE
     Dosage: ONCE
     Route: 065
     Dates: start: 199702, end: 19970820
  19. PREVACID [Suspect]
     Indication: GASTROOESOPHAGEAL REFLUX DISEASE
     Dosage: ONCE
     Route: 065
     Dates: start: 199702, end: 19970820
  20. PREVACID [Suspect]
     Indication: GASTROOESOPHAGEAL REFLUX DISEASE
     Route: 065
     Dates: start: 2001, end: 20030409
  21. PREVACID [Suspect]
     Indication: GASTROOESOPHAGEAL REFLUX DISEASE
     Route: 065
     Dates: start: 2001, end: 20030409
  22. PREVACID [Suspect]
     Indication: GASTROOESOPHAGEAL REFLUX DISEASE
     Route: 065
     Dates: start: 20030211
  23. PREVACID [Suspect]
     Indication: GASTROOESOPHAGEAL REFLUX DISEASE
     Route: 065
     Dates: start: 20030211
  24. TUMS [Suspect]
     Indication: DYSPEPSIA
     Route: 065
  25. TUMS [Suspect]
     Indication: GASTROOESOPHAGEAL REFLUX DISEASE
     Route: 065
  26. TUMS [Suspect]
     Indication: DYSPEPSIA
     Dosage: TOOK TWO TO THREE TIMES PER DAY OR AS NEEDED
     Route: 065
     Dates: start: 2000
  27. TUMS [Suspect]
     Indication: GASTROOESOPHAGEAL REFLUX DISEASE
     Dosage: TOOK TWO TO THREE TIMES PER DAY OR AS NEEDED
     Route: 065
     Dates: start: 2000
  28. ROLAIDS [Suspect]
     Indication: GASTROOESOPHAGEAL REFLUX DISEASE
     Route: 065
  29. ROLAIDS [Suspect]
     Indication: DYSPEPSIA
     Route: 065
  30. MYLANTA [Suspect]
     Indication: GASTROOESOPHAGEAL REFLUX DISEASE
     Route: 065
  31. ALKA SELTZER [Suspect]
     Indication: GASTROOESOPHAGEAL REFLUX DISEASE
     Route: 065
  32. ZANTAC [Concomitant]
  33. MILK OF MAGNESIA [Concomitant]
  34. PEPTO BISMOL [Concomitant]
     Indication: DIARRHOEA
  35. HCTZ/HYDROCHLOROTHIAZIDE [Concomitant]
  36. PREMARIN [Concomitant]
  37. ULTRAM [Concomitant]
  38. NEURONTIN [Concomitant]
  39. PRAVASTATIN [Concomitant]
     Route: 048
  40. CELEXA [Concomitant]
     Route: 048
  41. CALCIUM+VITAMIN D [Concomitant]

REACTIONS (29)
  - Osteoporosis [Unknown]
  - Wrist fracture [Unknown]
  - Radius fracture [Unknown]
  - Pneumocystis jirovecii pneumonia [Unknown]
  - Fibromyalgia [Unknown]
  - Fall [Unknown]
  - Depression [Unknown]
  - Major depression [Unknown]
  - Osteomyelitis [Unknown]
  - Bone disorder [Unknown]
  - Foot fracture [Unknown]
  - Upper limb fracture [Unknown]
  - Panic attack [Unknown]
  - Anxiety [Unknown]
  - Paranoia [Unknown]
  - Poor quality sleep [Unknown]
  - Disturbance in attention [Unknown]
  - Obsessive-compulsive disorder [Unknown]
  - Developmental coordination disorder [Unknown]
  - Psychotic disorder [Unknown]
  - Arthritis [Unknown]
  - Rheumatoid arthritis [Unknown]
  - Vitamin D deficiency [Unknown]
  - Bursitis [Unknown]
  - Carpal tunnel syndrome [Unknown]
  - Osteopenia [Unknown]
  - Osteoarthritis [Unknown]
  - Limb injury [Unknown]
  - Stress fracture [Unknown]
